FAERS Safety Report 6155646-X (Version None)
Quarter: 2009Q2

REPORT INFORMATION
  Report Type: 
  Country: None (occurrence: None)
  Receive Date: 20090415
  Receipt Date: 20090403
  Transmission Date: 20091009
  Serious: Yes (Other)
  Sender: FDA-Public Use
  Company Number: JP-BRISTOL-MYERS SQUIBB COMPANY-14582324

PATIENT
  Age: 75 Year
  Sex: Female

DRUGS (2)
  1. ABILIFY [Suspect]
     Indication: SCHIZOPHRENIA
     Dosage: INCREASED TO 12MG, 18MG, 24MG. THEN REDUCED TO 12MG
     Route: 048
  2. RISPERIDONE [Concomitant]
     Dosage: REDUCED TO 1MG/DAY

REACTIONS (3)
  - CEREBRAL HAEMORRHAGE [None]
  - DELUSION [None]
  - DYSTONIA [None]
